FAERS Safety Report 15925568 (Version 2)
Quarter: 2019Q1

REPORT INFORMATION
  Report Type: Spontaneous
  Country: US (occurrence: US)
  Receive Date: 20190205
  Receipt Date: 20190219
  Transmission Date: 20190417
  Serious: No
  Sender: FDA-Public Use
  Company Number: US-ALLERGAN-1833094US

PATIENT
  Age: 65 Year
  Sex: Female

DRUGS (1)
  1. BOTOX [Suspect]
     Active Substance: ONABOTULINUMTOXINA
     Indication: SKIN WRINKLING
     Dosage: UNK, SINGLE
     Route: 030

REACTIONS (5)
  - Injection site mass [Not Recovered/Not Resolved]
  - Brow ptosis [Unknown]
  - Injection site haemorrhage [Not Recovered/Not Resolved]
  - Therapeutic response decreased [Unknown]
  - Injection site bruising [Recovered/Resolved]
